FAERS Safety Report 18243292 (Version 2)
Quarter: 2020Q4

REPORT INFORMATION
  Report Type: Spontaneous
  Country: CA (occurrence: CA)
  Receive Date: 20200908
  Receipt Date: 20201105
  Transmission Date: 20210113
  Serious: Yes (Death, Hospitalization)
  Sender: FDA-Public Use
  Company Number: CA-JNJFOC-A-NJ2020-206943

PATIENT
  Age: 59 Year
  Sex: Female
  Weight: 97.51 kg

DRUGS (13)
  1. OPSUMIT [Suspect]
     Active Substance: MACITENTAN
     Indication: PULMONARY ARTERIAL HYPERTENSION
     Dosage: 10 MG
     Route: 048
     Dates: start: 20200220
  2. NITROGLYCERINE [Concomitant]
     Active Substance: NITROGLYCERIN
  3. SPIRONOLACTONE. [Concomitant]
     Active Substance: SPIRONOLACTONE
  4. OXYGEN. [Concomitant]
     Active Substance: OXYGEN
  5. ZAROXOLYN [Concomitant]
     Active Substance: METOLAZONE
  6. TRANDATE [Concomitant]
     Active Substance: LABETALOL HYDROCHLORIDE
  7. FELODIPINE. [Concomitant]
     Active Substance: FELODIPINE
  8. FUROSEMIDE. [Concomitant]
     Active Substance: FUROSEMIDE
  9. ONEALFA [Concomitant]
     Active Substance: ALFACALCIDOL
  10. ROSUVASTATIN. [Concomitant]
     Active Substance: ROSUVASTATIN
  11. TADALAFIL. [Concomitant]
     Active Substance: TADALAFIL
  12. ASA [Concomitant]
     Active Substance: ASPIRIN
  13. METFORMIN [Concomitant]
     Active Substance: METFORMIN HYDROCHLORIDE
     Indication: ESSENTIAL HYPERTENSION

REACTIONS (3)
  - Death [Fatal]
  - Fluid retention [Recovered/Resolved]
  - Renal disorder [Recovered/Resolved]

NARRATIVE: CASE EVENT DATE: 20200629
